FAERS Safety Report 10960980 (Version 1)
Quarter: 2015Q1

REPORT INFORMATION
  Report Type: Spontaneous
  Country: US (occurrence: None)
  Receive Date: 20150326
  Receipt Date: 20150326
  Transmission Date: 20150721
  Serious: Yes (Life-Threatening, Hospitalization)
  Sender: FDA-Public Use
  Company Number: None

PATIENT
  Age: 63 Year
  Sex: Female

DRUGS (13)
  1. AMLODIPINE [Concomitant]
     Active Substance: AMLODIPINE BESYLATE
  2. ATORVASTATIN [Concomitant]
     Active Substance: ATORVASTATIN
  3. ANCEF [Suspect]
     Active Substance: CEFAZOLIN SODIUM
     Indication: DRUG THERAPY
     Dosage: IN SURGERY
     Dates: start: 20140730
  4. LEVOTHYROXINE [Concomitant]
     Active Substance: LEVOTHYROXINE
  5. LISINOPRIL. [Concomitant]
     Active Substance: LISINOPRIL
  6. ASPIRIN. [Concomitant]
     Active Substance: ASPIRIN
  7. CLOPIDOGREL [Concomitant]
     Active Substance: CLOPIDOGREL BISULFATE
  8. METOPROLOL [Concomitant]
     Active Substance: METOPROLOL
  9. VANCOMYCIN [Suspect]
     Active Substance: VANCOMYCIN
  10. AMITRIPTYLINE [Concomitant]
     Active Substance: AMITRIPTYLINE
  11. FUROSEMIDE. [Concomitant]
     Active Substance: FUROSEMIDE
  12. METFORMIN [Concomitant]
     Active Substance: METFORMIN HYDROCHLORIDE
  13. EZETIMIBE. [Concomitant]
     Active Substance: EZETIMIBE

REACTIONS (5)
  - Pyrexia [None]
  - Skin exfoliation [None]
  - Thermal burn [None]
  - Toxic epidermal necrolysis [None]
  - Poor venous access [None]

NARRATIVE: CASE EVENT DATE: 20140802
